FAERS Safety Report 4402338-0 (Version None)
Quarter: 2004Q3

REPORT INFORMATION
  Report Type: 
  Country: None (occurrence: None)
  Receive Date: 20040715
  Receipt Date: 20040708
  Transmission Date: 20050211
  Serious: Yes (Death)
  Sender: FDA-Public Use
  Company Number: 2004-118316-NL

PATIENT
  Age: 44 Year
  Sex: Male

DRUGS (2)
  1. MIRTAZAPINE [Suspect]
     Dosage: DF
     Dates: start: 20031101, end: 20031201
  2. FLUOXETINE HCL [Concomitant]

REACTIONS (5)
  - ABNORMAL BEHAVIOUR [None]
  - ANGER [None]
  - COMPLETED SUICIDE [None]
  - DRUG INEFFECTIVE [None]
  - MARITAL PROBLEM [None]
